FAERS Safety Report 12675018 (Version 2)
Quarter: 2016Q3

REPORT INFORMATION
  Report Type: Report from Study
  Country: IL (occurrence: IL)
  Receive Date: 20160822
  Receipt Date: 20160912
  Transmission Date: 20161109
  Serious: Yes (Other)
  Sender: FDA-Public Use
  Company Number: IL-ABBVIE-16P-082-1707048-00

PATIENT
  Sex: Female

DRUGS (4)
  1. CEFAMEZIN [Suspect]
     Active Substance: CEFAZOLIN
     Indication: POST PROCEDURAL INFECTION
     Route: 042
  2. NORVASC [Concomitant]
     Active Substance: AMLODIPINE BESYLATE
     Indication: PRODUCT USED FOR UNKNOWN INDICATION
  3. VIEKIRAX [Suspect]
     Active Substance: OMBITASVIR\PARITAPREVIR\RITONAVIR
     Indication: HEPATITIS C
     Route: 048
     Dates: start: 20160615
  4. EXVIERA [Suspect]
     Active Substance: DASABUVIR
     Indication: HEPATITIS C
     Route: 048
     Dates: start: 20160615

REACTIONS (4)
  - Feeling abnormal [Recovered/Resolved]
  - Haemorrhage [Recovered/Resolved]
  - Dialysis related complication [Unknown]
  - Post procedural infection [Unknown]
